FAERS Safety Report 26021305 (Version 2)
Quarter: 2025Q4

REPORT INFORMATION
  Report Type: Spontaneous
  Country: EU (occurrence: EU)
  Receive Date: 20251110
  Receipt Date: 20251204
  Transmission Date: 20260117
  Serious: Yes (Life-Threatening, Other)
  Sender: FERRING
  Company Number: None

PATIENT

DRUGS (4)
  1. FIRMAGON [Suspect]
     Active Substance: DEGARELIX ACETATE
     Indication: Prostate cancer metastatic
     Dosage: 240 MG THEN 80 MG
     Route: 048
     Dates: start: 20250806, end: 20251010
  2. APALUTAMIDE [Suspect]
     Active Substance: APALUTAMIDE
     Indication: Prostate cancer metastatic
     Dosage: 240 MG, 1 TIME DAILY
     Route: 048
     Dates: start: 202509, end: 20251010
  3. TAMSULOSIN HYDROCHLORIDE [Concomitant]
     Active Substance: TAMSULOSIN HYDROCHLORIDE
     Indication: Prostatomegaly
     Dosage: 0.4 MG, 1 TIME DAILY
     Route: 048
     Dates: start: 202504, end: 20251010
  4. ROWASA [Concomitant]
     Active Substance: MESALAMINE
     Indication: Product used for unknown indication
     Dosage: UNK
     Route: 065

REACTIONS (2)
  - Febrile neutropenia [Recovered/Resolved]
  - Incorrect route of product administration [Recovered/Resolved]

NARRATIVE: CASE EVENT DATE: 20250806
